FAERS Safety Report 19059380 (Version 1)
Quarter: 2021Q1

REPORT INFORMATION
  Report Type: Report from Study
  Country: None (occurrence: TW)
  Receive Date: 20210326
  Receipt Date: 20210326
  Transmission Date: 20210420
  Serious: Yes (Death, Hospitalization)
  Sender: FDA-Public Use
  Company Number: TW-ABBVIE-21K-153-3832148-00

PATIENT
  Age: 56 Year
  Sex: Male
  Weight: 43 kg

DRUGS (1)
  1. HUMIRA [Suspect]
     Active Substance: ADALIMUMAB
     Indication: COLITIS ULCERATIVE
     Route: 058
     Dates: start: 20201014, end: 20210317

REACTIONS (10)
  - White blood cell count increased [Unknown]
  - Haemoglobin decreased [Unknown]
  - Asthenia [Unknown]
  - C-reactive protein increased [Unknown]
  - Blood albumin decreased [Unknown]
  - Blood electrolytes decreased [Unknown]
  - Mental impairment [Unknown]
  - Dizziness [Unknown]
  - Multiple organ dysfunction syndrome [Fatal]
  - Seizure [Unknown]

NARRATIVE: CASE EVENT DATE: 202103
